FAERS Safety Report 5019762-8 (Version None)
Quarter: 2006Q2

REPORT INFORMATION
  Report Type: 
  Country: None (occurrence: None)
  Receive Date: 20060607
  Receipt Date: 20060526
  Transmission Date: 20061013
  Serious: Yes (Other)
  Sender: FDA-Public Use
  Company Number: PHBS2006JP08038

PATIENT
  Age: 37 Year
  Sex: Female

DRUGS (2)
  1. PARLODEL [Suspect]
     Indication: GALACTORRHOEA
     Dosage: 5.0 MG/DAY
     Route: 048
     Dates: start: 20060523
  2. ANTIPHLOGISTICS,OTHER [Suspect]
     Indication: BREAST PAIN

REACTIONS (3)
  - BREAST INDURATION [None]
  - BREAST PAIN [None]
  - DRUG EXPOSURE DURING PREGNANCY [None]
